FAERS Safety Report 21550529 (Version 1)
Quarter: 2022Q4

REPORT INFORMATION
  Report Type: Spontaneous
  Country: JP (occurrence: None)
  Receive Date: 20221103
  Receipt Date: 20221103
  Transmission Date: 20230113
  Serious: Yes (Other)
  Sender: FDA-Public Use
  Company Number: 2022A359535

PATIENT
  Age: 71 Year
  Sex: Female

DRUGS (1)
  1. IMFINZI [Suspect]
     Active Substance: DURVALUMAB
     Indication: Non-small cell lung cancer
     Route: 041

REACTIONS (4)
  - Metastases to central nervous system [Unknown]
  - Metastases to pleura [Unknown]
  - Malignant pleural effusion [Unknown]
  - Radiation pneumonitis [Unknown]
